FAERS Safety Report 7166354-0 (Version None)
Quarter: 2010Q4

REPORT INFORMATION
  Report Type: 
  Country: None (occurrence: None)
  Receive Date: 20101216
  Receipt Date: 20101003
  Transmission Date: 20110411
  Serious: No
  Sender: FDA-Public Use
  Company Number: US-ABBOTT-10P-163-0676353-00

PATIENT
  Sex: Male
  Weight: 111.68 kg

DRUGS (4)
  1. TRILIPIX [Suspect]
     Indication: BLOOD CHOLESTEROL INCREASED
     Dates: start: 20090801
  2. TRILIPIX [Suspect]
     Indication: BLOOD TRIGLYCERIDES INCREASED
  3. BENICAR [Concomitant]
     Indication: HYPERTENSION
     Dates: end: 20100901
  4. UNKNOWN BP MEDICATION [Concomitant]
     Indication: BLOOD PRESSURE

REACTIONS (2)
  - BLOOD PRESSURE INCREASED [None]
  - DRUG ADMINISTRATION ERROR [None]
